FAERS Safety Report 5823045-3 (Version None)
Quarter: 2008Q3

REPORT INFORMATION
  Report Type: 
  Country: None (occurrence: None)
  Receive Date: 20080725
  Receipt Date: 20070831
  Transmission Date: 20090109
  Serious: No
  Sender: FDA-Public Use
  Company Number: US-AMGEN-KDL241396

PATIENT
  Sex: Female
  Weight: 122.6 kg

DRUGS (14)
  1. EPOGEN [Suspect]
     Indication: RENAL FAILURE CHRONIC
     Route: 058
     Dates: start: 20070101
  2. LIPITOR [Concomitant]
  3. CLONIDINE [Concomitant]
  4. METOPROLOL TARTRATE [Concomitant]
  5. NORVASC [Concomitant]
  6. LASIX [Concomitant]
  7. DARVOCET-N 100 [Concomitant]
  8. PRIMIDONE [Concomitant]
  9. TAXOL [Concomitant]
  10. RENAGEL [Concomitant]
  11. FERROUS SULFATE TAB [Concomitant]
  12. HECTORAL [Concomitant]
  13. COLCHICINE [Concomitant]
  14. ELAVIL [Concomitant]

REACTIONS (4)
  - BLOOD PHOSPHORUS INCREASED [None]
  - DRUG INEFFECTIVE [None]
  - VISUAL ACUITY REDUCED [None]
  - WEIGHT DECREASED [None]
